FAERS Safety Report 9893550 (Version 2)
Quarter: 2014Q1

REPORT INFORMATION
  Report Type: Spontaneous
  Country: JP (occurrence: JP)
  Receive Date: 20140213
  Receipt Date: 20140213
  Transmission Date: 20141002
  Serious: Yes (Hospitalization, Other)
  Sender: FDA-Public Use
  Company Number: PHHY2013JP145721

PATIENT
  Age: 69 Year
  Sex: Female
  Weight: 63 kg

DRUGS (2)
  1. TEGRETOL [Suspect]
     Indication: EPILEPSY
     Dosage: 1 DF, DAILY
     Route: 048
     Dates: start: 20130528, end: 20130529
  2. E KEPPRA [Concomitant]
     Indication: EPILEPSY
     Dosage: 1000 MG
     Route: 048
     Dates: start: 20130405

REACTIONS (6)
  - Drug eruption [Recovering/Resolving]
  - Swelling face [Recovering/Resolving]
  - Erythema [Recovering/Resolving]
  - Pyrexia [Unknown]
  - Periorbital oedema [Recovering/Resolving]
  - Pancytopenia [Recovering/Resolving]
